FAERS Safety Report 7255198-7 (Version None)
Quarter: 2011Q1

REPORT INFORMATION
  Report Type: 
  Country: None (occurrence: None)
  Receive Date: 20110129
  Receipt Date: 20100208
  Transmission Date: 20110831
  Serious: No
  Sender: FDA-Public Use
  Company Number: US-ABBOTT-10P-163-0625445-00

PATIENT
  Sex: Female
  Weight: 74.456 kg

DRUGS (4)
  1. HUMIRA [Suspect]
  2. WHOLE BLOOD [Concomitant]
     Indication: ANAEMIA
     Dosage: IF HEMOGLOBIN FALLS BELOW 9
     Route: 042
  3. HUMIRA [Suspect]
     Indication: CROHN'S DISEASE
     Dosage: ONCE
     Dates: start: 20091201, end: 20091201
  4. HYDROCODONE [Concomitant]
     Indication: ARTHRALGIA

REACTIONS (2)
  - INJECTION SITE HAEMATOMA [None]
  - HAEMATOCHEZIA [None]
